FAERS Safety Report 26211344 (Version 1)
Quarter: 2025Q4

REPORT INFORMATION
  Report Type: Spontaneous
  Country: US (occurrence: None)
  Receive Date: 20251230
  Receipt Date: 20251230
  Transmission Date: 20260118
  Serious: No
  Sender: CHIESI
  Company Number: US-CHIESI-2025CHF01147

PATIENT
  Sex: Female

DRUGS (1)
  1. ZYFLO [Suspect]
     Active Substance: ZILEUTON
     Indication: Asthma
     Dosage: UNK, QID
     Route: 061

REACTIONS (2)
  - Expired product administered [Not Recovered/Not Resolved]
  - No adverse event [Recovered/Resolved]
